FAERS Safety Report 21613569 (Version 1)
Quarter: 2022Q4

REPORT INFORMATION
  Report Type: Spontaneous
  Country: US (occurrence: US)
  Receive Date: 20221118
  Receipt Date: 20221118
  Transmission Date: 20230113
  Serious: No
  Sender: FDA-Public Use
  Company Number: ALC2022US004095

PATIENT
  Age: 73 Year
  Sex: Female
  Weight: 99.77 kg

DRUGS (4)
  1. EYSUVIS [Suspect]
     Active Substance: LOTEPREDNOL ETABONATE
     Indication: Dry eye
     Dosage: 1 DROP, 1X/DAY IN EACH EYE
     Route: 047
     Dates: start: 202202, end: 2022
  2. EYSUVIS [Suspect]
     Active Substance: LOTEPREDNOL ETABONATE
     Dosage: 1 DROP, 1X/DAY IN EACH EYE ^A COUPLE TIMES FOR SEVERAL DAYS
     Route: 047
     Dates: start: 2022, end: 2022
  3. EYSUVIS [Suspect]
     Active Substance: LOTEPREDNOL ETABONATE
     Dosage: 1 DROP, 1X/DAY IN EACH EYE
     Route: 047
     Dates: start: 202208, end: 2022
  4. PAXLOVID [Suspect]
     Active Substance: NIRMATRELVIR\RITONAVIR
     Indication: Product used for unknown indication
     Dosage: UNK, 2X/DAY (FOR A TOTAL OF 5 DAYS)
     Route: 065
     Dates: start: 202208

REACTIONS (9)
  - COVID-19 [Not Recovered/Not Resolved]
  - Cystitis [Not Recovered/Not Resolved]
  - Exposure via skin contact [Recovered/Resolved]
  - Eye irritation [Not Recovered/Not Resolved]
  - Feeling abnormal [Recovering/Resolving]
  - Product delivery mechanism issue [Not Recovered/Not Resolved]
  - Incorrect dose administered by product [Not Recovered/Not Resolved]
  - Therapeutic product effect incomplete [Recovered/Resolved]
  - Unevaluable event [Recovered/Resolved]

NARRATIVE: CASE EVENT DATE: 20220801
